FAERS Safety Report 5622311-4 (Version None)
Quarter: 2008Q1

REPORT INFORMATION
  Report Type: 
  Country: None (occurrence: None)
  Receive Date: 20080114
  Receipt Date: 20071022
  Transmission Date: 20080703
  Serious: Yes (Hospitalization)
  Sender: FDA-Public Use
  Company Number: A03200706112

PATIENT
  Age: 71 Year
  Sex: Male
  Weight: 86.17 kg

DRUGS (3)
  1. PLAVIX [Suspect]
     Indication: CARDIAC OPERATION
     Dosage: 75 MG QD - ORAL
     Route: 048
  2. SIMVASTATIN [Concomitant]
  3. FUROSEMIDE [Concomitant]

REACTIONS (3)
  - CYSTITIS [None]
  - HAEMORRHAGE [None]
  - INCREASED TENDENCY TO BRUISE [None]
